FAERS Safety Report 7775505-6 (Version None)
Quarter: 2011Q3

REPORT INFORMATION
  Report Type: 
  Country: None (occurrence: None)
  Receive Date: 20110923
  Receipt Date: 20091214
  Transmission Date: 20111222
  Serious: Yes (Death, Hospitalization)
  Sender: FDA-Public Use
  Company Number: TH-ROCHE-645064

PATIENT
  Sex: Female
  Weight: 20.2 kg

DRUGS (10)
  1. LAMIVUDINE (EPIVIR HBV) [Suspect]
     Dosage: DOSAGE FORM REPORTED AS CAPSULE/LIQUID.
     Route: 048
     Dates: start: 20050330, end: 20051102
  2. ISONIAZID [Concomitant]
     Dates: start: 20051102
  3. SAQUINAVIR [Suspect]
     Indication: HIV INFECTION
     Route: 048
     Dates: start: 20050330, end: 20051102
  4. LOPINAVIR/RITONAVIR [Suspect]
     Indication: HIV INFECTION
     Dosage: STRENGTH: 133/33 MG ADULT CAPSULES
     Route: 048
     Dates: start: 20050330, end: 20051102
  5. RIFAMPICIN [Concomitant]
     Dates: start: 20051102
  6. STREPTOMYCIN [Concomitant]
     Dates: start: 20051102
  7. FLUCONAZOLE [Concomitant]
     Dosage: TOTAL DAILY DOSE REPORTED AS 100 M,W,F.
     Dates: start: 20051207
  8. PYRAZINAMIDE [Concomitant]
     Dates: start: 20051102
  9. ACYCLOVIR [Concomitant]
     Dates: start: 20051207
  10. COTRIM [Concomitant]
     Dates: start: 20050524

REACTIONS (3)
  - DIARRHOEA INFECTIOUS [None]
  - PULMONARY TUBERCULOSIS [None]
  - GASTROENTERITIS [None]
